FAERS Safety Report 4392259-4 (Version None)
Quarter: 2004Q3

REPORT INFORMATION
  Report Type: 
  Country: None (occurrence: None)
  Receive Date: 20040702
  Receipt Date: 20040218
  Transmission Date: 20050211
  Serious: Yes (Other)
  Sender: FDA-Public Use
  Company Number: 2004UW02943

PATIENT
  Sex: Female
  Weight: 52.1637 kg

DRUGS (2)
  1. CRESTOR [Suspect]
     Indication: HYPERCHOLESTEROLAEMIA
     Dosage: 10 MG DAILY PO
     Route: 048
     Dates: start: 20040101
  2. ATENOLOL [Concomitant]

REACTIONS (2)
  - ALOPECIA [None]
  - BACK PAIN [None]
